FAERS Safety Report 15105818 (Version 1)
Quarter: 2018Q3

REPORT INFORMATION
  Report Type: Other
  Country: GB (occurrence: GB)
  Receive Date: 20180704
  Receipt Date: 20180704
  Transmission Date: 20181010
  Serious: No
  Sender: FDA-Public Use
  Company Number: GB-LUPIN PHARMACEUTICALS INC.-2018-03814

PATIENT
  Age: 65 Year
  Sex: Male
  Weight: 93 kg

DRUGS (9)
  1. RANITIDINE. [Concomitant]
     Active Substance: RANITIDINE
     Indication: ILL-DEFINED DISORDER
     Dosage: 1 DF, BID (TAKE ONE TWICE DAILY)
     Route: 065
     Dates: start: 20180123, end: 20180418
  2. ACETYLSALICYLIC ACID [Concomitant]
     Active Substance: ASPIRIN
     Indication: ILL-DEFINED DISORDER
     Dosage: QD (TAKE ONE DAILY)
     Route: 065
     Dates: start: 20180123, end: 20180418
  3. METFORMIN [Concomitant]
     Active Substance: METFORMIN HYDROCHLORIDE
     Indication: ILL-DEFINED DISORDER
     Dosage: 1 DF, BID (TAKE ONE TWICE DAILY)
     Route: 065
     Dates: start: 20180123, end: 20180418
  4. SIMVASTATIN. [Suspect]
     Active Substance: SIMVASTATIN
     Indication: PRODUCT USED FOR UNKNOWN INDICATION
     Dosage: UNK
     Route: 065
     Dates: start: 20180427
  5. PARACETAMOL [Concomitant]
     Active Substance: ACETAMINOPHEN
     Indication: ILL-DEFINED DISORDER
     Dosage: TAKE 1 OR 2, 4 TIMES/DAY
     Route: 065
     Dates: start: 20180123, end: 20180418
  6. AQUEOUS                            /00662801/ [Concomitant]
     Indication: ILL-DEFINED DISORDER
     Dosage: APPLY WHEN REQUIRED AS DIRECTED
     Route: 065
     Dates: start: 20180123, end: 20180418
  7. CETIRIZINE [Concomitant]
     Active Substance: CETIRIZINE HYDROCHLORIDE
     Indication: ILL-DEFINED DISORDER
     Dosage: 1 DF, QD (1 EVERY DAY)
     Route: 065
     Dates: start: 20180123, end: 20180418
  8. ATORVASTATIN [Concomitant]
     Active Substance: ATORVASTATIN
     Indication: ILL-DEFINED DISORDER
     Dosage: 1 DF, QD (TAKE ONE DAILY)
     Route: 065
     Dates: start: 20180123, end: 20180418
  9. BETNOVATE [Concomitant]
     Active Substance: BETAMETHASONE
     Indication: ILL-DEFINED DISORDER
     Dosage: BD
     Route: 065
     Dates: start: 20180123, end: 20180418

REACTIONS (1)
  - Rash [Recovered/Resolved]

NARRATIVE: CASE EVENT DATE: 20180427
